FAERS Safety Report 10418618 (Version 1)
Quarter: 2014Q3

REPORT INFORMATION
  Report Type: Spontaneous
  Country: US (occurrence: US)
  Receive Date: 20140829
  Receipt Date: 20140829
  Transmission Date: 20150326
  Serious: Yes (Hospitalization)
  Sender: FDA-Public Use
  Company Number: PHHY2014US105518

PATIENT
  Age: 81 Year
  Sex: Male

DRUGS (3)
  1. LINEZOLID. [Concomitant]
     Active Substance: LINEZOLID
     Indication: STAPHYLOCOCCAL BACTERAEMIA
     Route: 048
  2. NAFCILLIN [Suspect]
     Active Substance: NAFCILLIN\NAFCILLIN SODIUM
     Indication: STAPHYLOCOCCAL BACTERAEMIA
     Route: 042
  3. KEFLEX [Concomitant]
     Active Substance: CEPHALEXIN
     Indication: STAPHYLOCOCCAL BACTERAEMIA
     Dosage: UNK UKN, UNK

REACTIONS (5)
  - Staphylococcal bacteraemia [Recovered/Resolved]
  - Pathogen resistance [Unknown]
  - Staphylococcal infection [Unknown]
  - Pyrexia [Recovered/Resolved]
  - Device related infection [Recovered/Resolved]
